FAERS Safety Report 5828999-7 (Version None)
Quarter: 2008Q3

REPORT INFORMATION
  Report Type: 
  Country: None (occurrence: None)
  Receive Date: 20080731
  Receipt Date: 20080723
  Transmission Date: 20090109
  Serious: Yes (Other)
  Sender: FDA-Public Use
  Company Number: PHHY2008CA15523

PATIENT
  Sex: Male

DRUGS (3)
  1. CLOZARIL [Suspect]
     Indication: SCHIZOPHRENIA
     Dosage: UNK
     Dates: start: 20080623
  2. LITHIUM [Concomitant]
  3. LAMOTRIGINE [Concomitant]

REACTIONS (2)
  - MOVEMENT DISORDER [None]
  - SLEEP PARALYSIS [None]
